FAERS Safety Report 14920644 (Version 1)
Quarter: 2018Q2

REPORT INFORMATION
  Report Type: Spontaneous
  Country: US (occurrence: US)
  Receive Date: 20180521
  Receipt Date: 20180521
  Transmission Date: 20180711
  Serious: No
  Sender: FDA-Public Use
  Company Number: US-BAUSCH-BL-2017-024063

PATIENT
  Age: 76 Year
  Sex: Female

DRUGS (5)
  1. TOBRADEX [Concomitant]
     Active Substance: DEXAMETHASONE\TOBRAMYCIN
     Indication: CORNEAL PERFORATION
     Dosage: AROUND 27/JUL/2017
     Dates: start: 201707
  2. PRILOSEC [Concomitant]
     Active Substance: OMEPRAZOLE MAGNESIUM
     Indication: MUSCLE INJURY
     Route: 048
     Dates: start: 2000
  3. ACYCLOVIR. [Suspect]
     Active Substance: ACYCLOVIR
     Indication: HERPES ZOSTER
     Dosage: ONE TUBE
     Route: 061
     Dates: start: 20170803, end: 20170812
  4. POLYTRIM [Concomitant]
     Active Substance: POLYMYXIN B SULFATE\TRIMETHOPRIM SULFATE
     Indication: CATARACT
     Dosage: AROUND 20/JUL/2017
     Dates: start: 201707
  5. IMIQUIMOD. [Concomitant]
     Active Substance: IMIQUIMOD
     Indication: SKIN PAPILLOMA
     Dosage: BEFORE BED, END OF MAY 2017
     Route: 061
     Dates: start: 201705, end: 20170708

REACTIONS (5)
  - Drug ineffective [Recovered/Resolved]
  - Drug dose omission [Unknown]
  - Oral herpes [Recovered/Resolved]
  - Neuralgia [Unknown]
  - Tinnitus [Not Recovered/Not Resolved]

NARRATIVE: CASE EVENT DATE: 2017
